FAERS Safety Report 15556574 (Version 1)
Quarter: 2018Q4

REPORT INFORMATION
  Report Type: Spontaneous
  Country: IT (occurrence: IT)
  Receive Date: 20181026
  Receipt Date: 20181026
  Transmission Date: 20190205
  Serious: Yes (Hospitalization)
  Sender: FDA-Public Use
  Company Number: IT-ASTRAZENECA-2018SF38591

PATIENT
  Age: 24597 Day
  Sex: Male

DRUGS (5)
  1. BUDESONIDE FORMOTEROL [Concomitant]
     Active Substance: BUDESONIDE
  2. PLAVIX [Concomitant]
     Active Substance: CLOPIDOGREL BISULFATE
     Indication: CARDIAC DISORDER
  3. FASENRA [Suspect]
     Active Substance: BENRALIZUMAB
     Route: 058
     Dates: start: 20180921
  4. TIOTROPIUM [Concomitant]
     Active Substance: TIOTROPIUM
  5. IVABRADINE [Concomitant]
     Active Substance: IVABRADINE

REACTIONS (1)
  - Abdominal pain [Unknown]

NARRATIVE: CASE EVENT DATE: 20181016
